FAERS Safety Report 8202107-X (Version None)
Quarter: 2012Q1

REPORT INFORMATION
  Report Type: 
  Country: None (occurrence: None)
  Receive Date: 20120312
  Receipt Date: 20120305
  Transmission Date: 20120608
  Serious: Yes (Hospitalization, Other)
  Sender: FDA-Public Use
  Company Number: US-ABBOTT-12P-163-0912214-00

PATIENT
  Sex: Female
  Weight: 49.032 kg

DRUGS (10)
  1. VITAMIN B-12 [Concomitant]
     Indication: VITAMIN SUPPLEMENTATION
  2. VITAMIN D [Concomitant]
     Indication: VITAMIN SUPPLEMENTATION
  3. HUMIRA [Suspect]
     Indication: CROHN'S DISEASE
     Dates: start: 20090901
  4. CREON [Concomitant]
     Indication: CROHN'S DISEASE
  5. TEMAZEPAM [Concomitant]
     Indication: INSOMNIA
  6. IMODIUM [Concomitant]
     Indication: CROHN'S DISEASE
  7. CALCIUM [Concomitant]
     Indication: MINERAL SUPPLEMENTATION
  8. LYRICA [Concomitant]
     Indication: SPINAL FUSION SURGERY
  9. MULTI-VITAMIN [Concomitant]
     Indication: VITAMIN SUPPLEMENTATION
  10. LEXAPRO [Concomitant]
     Indication: PRODUCT USED FOR UNKNOWN INDICATION

REACTIONS (10)
  - FISTULA [None]
  - HAEMORRHOIDS [None]
  - DIARRHOEA [None]
  - BENIGN GASTROINTESTINAL NEOPLASM [None]
  - CANDIDIASIS [None]
  - GASTROINTESTINAL FISTULA [None]
  - WHITE BLOOD CELL COUNT INCREASED [None]
  - INFECTION [None]
  - GASTROINTESTINAL PAIN [None]
  - PSORIASIS [None]
